FAERS Safety Report 5759888-4 (Version None)
Quarter: 2008Q2

REPORT INFORMATION
  Report Type: 
  Country: None (occurrence: None)
  Receive Date: 20080605
  Receipt Date: 20080602
  Transmission Date: 20081010
  Serious: Yes (Life-Threatening, Hospitalization, Other)
  Sender: FDA-Public Use
  Company Number: PHEH2008US04986

PATIENT
  Sex: Female

DRUGS (2)
  1. EXFORGE [Suspect]
     Dosage: 5/160 MG DAILY
     Route: 048
     Dates: start: 20080220, end: 20080318
  2. HYPNOTICS AND SEDATIVES [Suspect]

REACTIONS (18)
  - AGGRESSION [None]
  - AGITATED DEPRESSION [None]
  - ANGER [None]
  - ANOREXIA [None]
  - CYSTITIS [None]
  - DEHYDRATION [None]
  - DEPERSONALISATION [None]
  - DIZZINESS [None]
  - FALL [None]
  - FEELING OF DESPAIR [None]
  - HEART RATE DECREASED [None]
  - INSOMNIA [None]
  - KIDNEY INFECTION [None]
  - PSYCHOMOTOR HYPERACTIVITY [None]
  - RENAL FAILURE [None]
  - SUICIDAL IDEATION [None]
  - SUICIDE ATTEMPT [None]
  - URINE OUTPUT DECREASED [None]
